FAERS Safety Report 18284444 (Version 4)
Quarter: 2020Q4

REPORT INFORMATION
  Report Type: Spontaneous
  Country: US (occurrence: US)
  Receive Date: 20200919
  Receipt Date: 20201026
  Transmission Date: 20210113
  Serious: Yes (Other)
  Sender: FDA-Public Use
  Company Number: US-ASTRAZENECA-2020SF16195

PATIENT
  Sex: Female
  Weight: 62.6 kg

DRUGS (2)
  1. ENBREL [Concomitant]
     Active Substance: ETANERCEPT
  2. BYDUREON BCISE [Suspect]
     Active Substance: EXENATIDE
     Indication: TYPE 2 DIABETES MELLITUS
     Route: 058
     Dates: start: 2018

REACTIONS (6)
  - Blindness unilateral [Not Recovered/Not Resolved]
  - Eye infection [Unknown]
  - Product dose omission issue [Unknown]
  - Herpes zoster [Unknown]
  - Wrong technique in device usage process [Unknown]
  - Device malfunction [Unknown]
